FAERS Safety Report 6550837-8 (Version None)
Quarter: 2010Q1

REPORT INFORMATION
  Report Type: 
  Country: None (occurrence: None)
  Receive Date: 20100125
  Receipt Date: 20100104
  Transmission Date: 20100710
  Serious: Yes (Death)
  Sender: FDA-Public Use
  Company Number: US-BAYER-201012652GPV

PATIENT
  Age: 55 Year
  Sex: Female

DRUGS (4)
  1. SALICYLATES [Suspect]
  2. ACETAMINOPHEN [Suspect]
  3. DOXYLAMINE [Suspect]
  4. ANTIHISTAMINES [Suspect]

REACTIONS (5)
  - CARDIAC ARREST [None]
  - CONFUSIONAL STATE [None]
  - DRUG TOXICITY [None]
  - GRAND MAL CONVULSION [None]
  - PYREXIA [None]
